FAERS Safety Report 7206182-0 (Version None)
Quarter: 2010Q4

REPORT INFORMATION
  Report Type: 
  Country: None (occurrence: None)
  Receive Date: 20101217
  Receipt Date: 20101203
  Transmission Date: 20110411
  Serious: Yes (Hospitalization)
  Sender: FDA-Public Use
  Company Number: 019859

PATIENT
  Sex: Female

DRUGS (18)
  1. CERTOLIZUMAB PEGOL (CERTOLIZUMAB PEGOL) [Suspect]
     Indication: RHEUMATOID ARTHRITIS
     Dosage: (200 MG 1X/2 WEEKS SUBCUTANEOUS)
     Route: 058
     Dates: start: 20090930, end: 20100915
  2. REBAMAPIDE [Concomitant]
  3. SALAZOSULFAPYRIDINE [Concomitant]
  4. DICLOFENAC SODIUM [Concomitant]
  5. LANSOPRAZOLE [Concomitant]
  6. CANDESARTAN CILEXETIL [Concomitant]
  7. TAUROURSODESOXYCHOLIC ACID [Concomitant]
  8. SENNA LEAF [Concomitant]
  9. MAGNESIUM OXIDE [Concomitant]
  10. SODIUM PICOSULFATE [Concomitant]
  11. ALENDRONATE SODIUM [Concomitant]
  12. AMITRIPTYLINE HYDROCHLORIDE [Concomitant]
  13. MEXILETINE HYDROCHLORIDE [Concomitant]
  14. SODIUM GUALENATE [Concomitant]
  15. HYALURONATE SODIUM [Concomitant]
  16. CYANOCOBALAMIN [Concomitant]
  17. PIRENOXINE [Concomitant]
  18. PREDNISOLONE [Concomitant]

REACTIONS (3)
  - DECUBITUS ULCER [None]
  - IMMUNE SYSTEM DISORDER [None]
  - WOUND INFECTION [None]
